FAERS Safety Report 17337495 (Version 2)
Quarter: 2020Q1

REPORT INFORMATION
  Report Type: Report from Study
  Country: US (occurrence: US)
  Receive Date: 20200129
  Receipt Date: 20200214
  Transmission Date: 20200409
  Serious: No
  Sender: FDA-Public Use
  Company Number: NVSC2020US021347

PATIENT
  Age: 68 Year
  Sex: Female

DRUGS (1)
  1. ENTRESTO [Suspect]
     Active Substance: SACUBITRIL\VALSARTAN
     Indication: PRODUCT USED FOR UNKNOWN INDICATION
     Dosage: UNK (49 MG  SACUBITRIL/ 51MG VALSARTAN)
     Route: 065
     Dates: start: 201912

REACTIONS (11)
  - Palpitations [Recovering/Resolving]
  - Burning sensation [Not Recovered/Not Resolved]
  - Chest discomfort [Recovering/Resolving]
  - Muscle spasms [Not Recovered/Not Resolved]
  - Pain in extremity [Not Recovered/Not Resolved]
  - Pharyngeal swelling [Not Recovered/Not Resolved]
  - Diarrhoea [Recovering/Resolving]
  - Swelling [Not Recovered/Not Resolved]
  - Vomiting [Recovering/Resolving]
  - Contusion [Not Recovered/Not Resolved]
  - Dysphonia [Not Recovered/Not Resolved]

NARRATIVE: CASE EVENT DATE: 202001
